FAERS Safety Report 6422578-9 (Version None)
Quarter: 2009Q4

REPORT INFORMATION
  Report Type: 
  Country: None (occurrence: None)
  Receive Date: 20091102
  Receipt Date: 20091022
  Transmission Date: 20100525
  Serious: Yes (Hospitalization)
  Sender: FDA-Public Use
  Company Number: US-BIOGENIDEC-2009BI034155

PATIENT
  Age: 40 Year
  Sex: Male

DRUGS (2)
  1. AVONEX [Suspect]
     Indication: MULTIPLE SCLEROSIS
     Route: 030
     Dates: start: 20040911
  2. AVONEX [Suspect]
     Route: 030
     Dates: start: 20040911

REACTIONS (7)
  - ABDOMINAL PAIN UPPER [None]
  - EXTENSIVE SWELLING OF VACCINATED LIMB [None]
  - HEADACHE [None]
  - HYPOAESTHESIA [None]
  - NIGHTMARE [None]
  - PNEUMONIA [None]
  - SPINAL FUSION SURGERY [None]
